FAERS Safety Report 17568746 (Version 1)
Quarter: 2020Q1

REPORT INFORMATION
  Report Type: Spontaneous
  Country: US (occurrence: US)
  Receive Date: 20200321
  Receipt Date: 20200321
  Transmission Date: 20200409
  Serious: Yes (Death, Life-Threatening, Hospitalization, Other)
  Sender: FDA-Public Use
  Company Number: US-MACLEODS PHARMACEUTICALS US LTD-MAC2020025754

PATIENT

DRUGS (7)
  1. RIVAROXABAN [Concomitant]
     Active Substance: RIVAROXABAN
     Indication: PRODUCT USED FOR UNKNOWN INDICATION
     Dosage: UNK
     Route: 065
  2. VALPROIC ACID. [Interacting]
     Active Substance: VALPROIC ACID
     Indication: PRODUCT USED FOR UNKNOWN INDICATION
     Dosage: 7 DOSAGE FORM, SINGLE
     Route: 048
  3. MIRTAZAPINE. [Interacting]
     Active Substance: MIRTAZAPINE
     Indication: PRODUCT USED FOR UNKNOWN INDICATION
     Dosage: 7 DOSAGE FORM, SINGLE
     Route: 048
  4. TRAZODONE [Interacting]
     Active Substance: TRAZODONE HYDROCHLORIDE
     Indication: PRODUCT USED FOR UNKNOWN INDICATION
     Dosage: UNK
     Route: 065
  5. QUETIAPINE TABLET [Suspect]
     Active Substance: QUETIAPINE
     Indication: PRODUCT USED FOR UNKNOWN INDICATION
     Dosage: 7 DOSAGE FORM, SINGLE
     Route: 048
  6. RANOLAZINE. [Interacting]
     Active Substance: RANOLAZINE
     Indication: PRODUCT USED FOR UNKNOWN INDICATION
     Dosage: 50 DOSAGE FORM, SINGLE
     Route: 048
  7. GABAPENTIN. [Interacting]
     Active Substance: GABAPENTIN
     Indication: PRODUCT USED FOR UNKNOWN INDICATION
     Dosage: UNK
     Route: 065

REACTIONS (14)
  - Drug level increased [Fatal]
  - Pulseless electrical activity [Fatal]
  - Drug interaction [Fatal]
  - Electrocardiogram QT prolonged [Unknown]
  - Hypotension [Unknown]
  - Hyperhidrosis [Unknown]
  - Toxicity to various agents [Fatal]
  - Cardiac arrest [Fatal]
  - Intentional overdose [Fatal]
  - Tonic clonic movements [Unknown]
  - Hypoxia [Unknown]
  - Pulmonary oedema [Unknown]
  - Somnolence [Unknown]
  - Bradycardia [Unknown]
